FAERS Safety Report 6767956-3 (Version None)
Quarter: 2010Q2

REPORT INFORMATION
  Report Type: 
  Country: None (occurrence: None)
  Receive Date: 20100614
  Receipt Date: 20100602
  Transmission Date: 20101027
  Serious: Yes (Hospitalization, Disabling)
  Sender: FDA-Public Use
  Company Number: US-ELI_LILLY_AND_COMPANY-US200911006179

PATIENT
  Sex: Female
  Weight: 102.49 kg

DRUGS (9)
  1. ZYPREXA [Suspect]
     Dosage: 20 MG, DAILY (1/D)
     Dates: start: 19990101, end: 20040101
  2. ABILIFY [Concomitant]
     Dates: start: 20070101
  3. RISPERDAL [Concomitant]
     Dates: start: 20070101
  4. HALDOL [Concomitant]
     Dosage: 10 MG, 2/D
  5. HALDOL [Concomitant]
     Dosage: 10 MG, 3/D
  6. HALDOL [Concomitant]
     Dosage: 10 MG, 4/D
  7. HALDOL [Concomitant]
     Dosage: 200 MG, MONTHLY (1/M)
     Route: 030
  8. COGENTIN [Concomitant]
     Dosage: 1 MG, 2/D
  9. TRAZODONE [Concomitant]
     Dosage: 50 MG, EACH EVENING

REACTIONS (10)
  - BLOOD CHOLESTEROL [None]
  - BLOOD TRIGLYCERIDES INCREASED [None]
  - DIABETES MELLITUS [None]
  - HEPATIC STEATOSIS [None]
  - HEPATOMEGALY [None]
  - HYPERTENSION [None]
  - VISION BLURRED [None]
  - VULVOVAGINAL CANDIDIASIS [None]
  - WEIGHT INCREASED [None]
  - WHITE BLOOD CELL COUNT INCREASED [None]
